FAERS Safety Report 25168051 (Version 1)
Quarter: 2025Q2

REPORT INFORMATION
  Report Type: Spontaneous
  Country: US (occurrence: None)
  Receive Date: 20250407
  Receipt Date: 20250407
  Transmission Date: 20250716
  Serious: No
  Sender: FDA-CTU
  Company Number: None

PATIENT

DRUGS (1)
  1. KESIMPTA [Suspect]
     Active Substance: OFATUMUMAB

REACTIONS (5)
  - Multiple sclerosis [None]
  - Arthralgia [None]
  - Dizziness [None]
  - Asthenia [None]
  - Fall [None]
